FAERS Safety Report 6120981-8 (Version None)
Quarter: 2009Q1

REPORT INFORMATION
  Report Type: 
  Country: None (occurrence: None)
  Receive Date: 20090312
  Receipt Date: 20090312
  Transmission Date: 20090719
  Serious: Yes (Hospitalization)
  Sender: FDA-Public Use
  Company Number: None

PATIENT
  Age: 59 Year
  Sex: Male
  Weight: 105.7 kg

DRUGS (1)
  1. PHENYTOIN [Suspect]
     Indication: CONVULSION
     Dosage: 100 MG QID PO
     Route: 048
     Dates: start: 20090115, end: 20090220

REACTIONS (10)
  - CONJUNCTIVITIS [None]
  - HEPATIC ENZYME INCREASED [None]
  - MALAISE [None]
  - MOUTH ULCERATION [None]
  - MUCOSAL INFLAMMATION [None]
  - PHARYNGEAL ULCERATION [None]
  - PYREXIA [None]
  - RASH MACULO-PAPULAR [None]
  - SKIN EXFOLIATION [None]
  - TONGUE ULCERATION [None]
